APPROVED DRUG PRODUCT: YUTREPIA
Active Ingredient: TREPROSTINIL SODIUM
Strength: EQ 0.0265MG BASE/INH
Dosage Form/Route: POWDER;INHALATION
Application: N213005 | Product #001
Applicant: LIQUIDIA TECHNOLOGIES INC
Approved: May 23, 2025 | RLD: Yes | RS: Yes | Type: RX

PATENTS:
Patent 11712442 | Expires: May 5, 2037
Patent 10898494 | Expires: May 5, 2037
Patent 11660304 | Expires: May 5, 2037
Patent 12390475 | Expires: May 5, 2037
Patent 11744836 | Expires: May 5, 2037
Patent 11744835 | Expires: May 5, 2037

EXCLUSIVITY:
Code: NP | Date: May 23, 2028